FAERS Safety Report 22329800 (Version 3)
Quarter: 2025Q1

REPORT INFORMATION
  Report Type: Spontaneous
  Country: US (occurrence: US)
  Receive Date: 20230517
  Receipt Date: 20250324
  Transmission Date: 20250409
  Serious: No
  Sender: ROCHE
  Company Number: US-ROCHE-3203978

PATIENT
  Age: 44 Year
  Sex: Female

DRUGS (2)
  1. ACTEMRA [Suspect]
     Active Substance: TOCILIZUMAB
     Indication: Rheumatoid arthritis
     Route: 042
     Dates: start: 202209
  2. FASENRA [Concomitant]
     Active Substance: BENRALIZUMAB

REACTIONS (4)
  - Joint swelling [Unknown]
  - Arthralgia [Unknown]
  - Stress [Unknown]
  - Weight increased [Unknown]

NARRATIVE: CASE EVENT DATE: 20241202
